FAERS Safety Report 7725936-5 (Version None)
Quarter: 2011Q3

REPORT INFORMATION
  Report Type: 
  Country: None (occurrence: None)
  Receive Date: 20110902
  Receipt Date: 20110823
  Transmission Date: 20111222
  Serious: Yes (Hospitalization)
  Sender: FDA-Public Use
  Company Number: AU-SANOFI-AVENTIS-2011SA054894

PATIENT
  Age: 38 Year
  Sex: Female
  Weight: 80 kg

DRUGS (5)
  1. OXYCODONE HCL [Concomitant]
  2. PRAMIN [Concomitant]
  3. DOCETAXEL [Suspect]
     Route: 041
     Dates: start: 20110811, end: 20110811
  4. BLINDED THERAPY [Suspect]
     Route: 042
     Dates: start: 20110811
  5. OXYCODONE HCL [Concomitant]

REACTIONS (2)
  - CONSTIPATION [None]
  - URINARY RETENTION [None]
